FAERS Safety Report 24411092 (Version 1)
Quarter: 2024Q4

REPORT INFORMATION
  Report Type: Spontaneous
  Country: US (occurrence: US)
  Receive Date: 20241008
  Receipt Date: 20241008
  Transmission Date: 20250114
  Serious: No
  Sender: LEO PHARM
  Company Number: US-LEO Pharma-374050

PATIENT
  Age: 24 Year
  Sex: Female

DRUGS (1)
  1. ADBRY [Suspect]
     Active Substance: TRALOKINUMAB-LDRM
     Indication: Dermatitis atopic
     Dosage: TREATMENT IS ONGOING
     Route: 058
     Dates: start: 202408

REACTIONS (4)
  - Skin burning sensation [Unknown]
  - Pruritus [Unknown]
  - Blepharospasm [Recovered/Resolved]
  - Erythema [Unknown]
